FAERS Safety Report 21822703 (Version 1)
Quarter: 2023Q1

REPORT INFORMATION
  Report Type: Spontaneous
  Country: US (occurrence: US)
  Receive Date: 20230105
  Receipt Date: 20230105
  Transmission Date: 20230417
  Serious: No
  Sender: FDA-Public Use
  Company Number: US-BRISTOL-MYERS SQUIBB COMPANY-2023-001701

PATIENT
  Age: 47 Year
  Sex: Female

DRUGS (1)
  1. SPRYCEL [Suspect]
     Active Substance: DASATINIB
     Indication: Acute lymphocytic leukaemia
     Dosage: FREQUENCY: TAKE 1 TABLET TWICE A DAY FOR DAYS 1 TO 14 OF A 21 DAY CYCLE.
     Route: 048
     Dates: start: 202109

REACTIONS (3)
  - Constipation [Unknown]
  - Pain [Unknown]
  - Dyschezia [Unknown]
